FAERS Safety Report 7618059-7 (Version None)
Quarter: 2011Q3

REPORT INFORMATION
  Report Type: 
  Country: None (occurrence: None)
  Receive Date: 20110718
  Receipt Date: 20110714
  Transmission Date: 20111222
  Serious: Yes (Other)
  Sender: FDA-Public Use
  Company Number: NZ-PFIZER INC-2011160162

PATIENT
  Age: 56 Year
  Sex: Male

DRUGS (3)
  1. VARENICLINE TARTRATE [Suspect]
     Indication: SMOKING CESSATION THERAPY
     Dosage: UNK
     Dates: start: 20110217, end: 20110301
  2. OXYCODONE [Concomitant]
  3. PARACETAMOL [Concomitant]

REACTIONS (1)
  - ANKYLOSING SPONDYLITIS [None]
